FAERS Safety Report 18380546 (Version 2)
Quarter: 2021Q1

REPORT INFORMATION
  Report Type: Report from Study
  Country: US (occurrence: US)
  Receive Date: 20201014
  Receipt Date: 20210106
  Transmission Date: 20210419
  Serious: Yes (Other)
  Sender: FDA-Public Use
  Company Number: US-EMD SERONO-9191176

PATIENT
  Sex: Female

DRUGS (1)
  1. REBIF [Suspect]
     Active Substance: INTERFERON BETA-1A
     Indication: MULTIPLE SCLEROSIS
     Dosage: REBIF PREFILLED SYRINGE
     Route: 058
     Dates: start: 20060705

REACTIONS (9)
  - Adverse drug reaction [Unknown]
  - Rotator cuff syndrome [Unknown]
  - Impatience [Unknown]
  - Balance disorder [Unknown]
  - Mental disorder [Unknown]
  - Palpitations [Unknown]
  - Uterine dilation and curettage [Unknown]
  - Toe operation [Unknown]
  - Feeling abnormal [Unknown]
